FAERS Safety Report 13889343 (Version 1)
Quarter: 2017Q3

REPORT INFORMATION
  Report Type: Spontaneous
  Country: US (occurrence: US)
  Receive Date: 20170822
  Receipt Date: 20170822
  Transmission Date: 20171127
  Serious: No
  Sender: FDA-Public Use
  Company Number: US-ROCHE-1095099

PATIENT
  Sex: Female

DRUGS (5)
  1. ACTEMRA [Suspect]
     Active Substance: TOCILIZUMAB
     Indication: RHEUMATOID ARTHRITIS
     Route: 042
     Dates: start: 20120514
  2. METHOTREXATE. [Concomitant]
     Active Substance: METHOTREXATE
  3. VITAMINS [Concomitant]
     Active Substance: VITAMINS
  4. ARMOUR THYROID [Concomitant]
     Active Substance: THYROID, PORCINE
  5. TRAMADOL. [Concomitant]
     Active Substance: TRAMADOL

REACTIONS (4)
  - Cough [Unknown]
  - Weight decreased [Unknown]
  - Pruritus [Unknown]
  - Skin disorder [Unknown]
